FAERS Safety Report 6928179-8 (Version None)
Quarter: 2010Q3

REPORT INFORMATION
  Report Type: 
  Country: None (occurrence: None)
  Receive Date: 20100817
  Receipt Date: 20100805
  Transmission Date: 20110219
  Serious: Yes (Hospitalization)
  Sender: FDA-Public Use
  Company Number: BE-ROCHE-662895

PATIENT
  Sex: Male
  Weight: 76 kg

DRUGS (12)
  1. BEVACIZUMAB [Suspect]
     Route: 042
     Dates: start: 20090617, end: 20090730
  2. BEVACIZUMAB [Suspect]
     Route: 042
     Dates: start: 20090827, end: 20090910
  3. BEVACIZUMAB [Suspect]
     Route: 042
     Dates: start: 20091008, end: 20091016
  4. BEVACIZUMAB [Suspect]
     Dosage: VISIT 20 WEEK 18
     Route: 042
     Dates: start: 20091022
  5. TEMSIROLIMUS [Suspect]
     Route: 042
     Dates: start: 20090617, end: 20090910
  6. TEMSIROLIMUS [Suspect]
     Route: 042
     Dates: start: 20091001, end: 20091016
  7. TEMSIROLIMUS [Suspect]
     Route: 042
     Dates: start: 20091022
  8. OMEPRAZOLE [Concomitant]
     Dates: start: 20090521
  9. CETRIZINE [Concomitant]
     Dates: start: 20090806
  10. NASONEX [Concomitant]
     Indication: SINUSITIS
     Dates: start: 20090912
  11. LIPITOR [Concomitant]
     Indication: HYPERCHOLESTEROLAEMIA
  12. MEDROL [Concomitant]
     Dates: start: 20090717

REACTIONS (3)
  - PNEUMONITIS [None]
  - PYREXIA [None]
  - SINUSITIS [None]
